FAERS Safety Report 5482489-2 (Version None)
Quarter: 2007Q4

REPORT INFORMATION
  Report Type: 
  Country: None (occurrence: None)
  Receive Date: 20071011
  Receipt Date: 20071001
  Transmission Date: 20080405
  Serious: Yes (Hospitalization, Other)
  Sender: FDA-Public Use
  Company Number: GB-JNJFOC-20071000585

PATIENT
  Sex: Female
  Weight: 65 kg

DRUGS (6)
  1. INFLIXIMAB [Suspect]
     Indication: RHEUMATOID ARTHRITIS
     Route: 042
  2. METHOTREXATE [Concomitant]
  3. PREDNISOLONE [Concomitant]
  4. FOLIC ACID [Concomitant]
  5. PARACETAMOL [Concomitant]
  6. SALAZOPYRIN [Concomitant]

REACTIONS (2)
  - ADVERSE EVENT [None]
  - DRUG EXPOSURE BEFORE PREGNANCY [None]
